FAERS Safety Report 10004075 (Version 3)
Quarter: 2014Q2

REPORT INFORMATION
  Report Type: Report from Study
  Country: DE (occurrence: DE)
  Receive Date: 20140312
  Receipt Date: 20140414
  Transmission Date: 20141212
  Serious: Yes (Hospitalization)
  Sender: FDA-Public Use
  Company Number: DE-ABBVIE-14P-062-1210195-00

PATIENT
  Age: 45 Year
  Sex: Female

DRUGS (6)
  1. HUMIRA [Suspect]
     Indication: COLITIS ULCERATIVE
     Route: 058
     Dates: start: 20130314, end: 201402
  2. HUMIRA [Suspect]
     Dates: start: 201402
  3. ANTIBIOTICS [Suspect]
     Indication: TOOTH DISORDER
     Dates: start: 201402
  4. L-THYROXIN [Concomitant]
     Indication: HYPOTHYROIDISM
  5. ANTIHYPERTENSIVES [Concomitant]
     Indication: HYPERTENSION
  6. ANTIHYPERTENSIVES [Concomitant]
     Indication: HYPERTENSION

REACTIONS (2)
  - Tooth disorder [Not Recovered/Not Resolved]
  - Colitis ulcerative [Not Recovered/Not Resolved]
